FAERS Safety Report 5008656-X (Version None)
Quarter: 2006Q2

REPORT INFORMATION
  Report Type: 
  Country: None (occurrence: None)
  Receive Date: 20060523
  Receipt Date: 20060518
  Transmission Date: 20061013
  Serious: Yes (Other)
  Sender: FDA-Public Use
  Company Number: CA-GLAXOSMITHKLINE-A0606436A

PATIENT
  Sex: Female

DRUGS (7)
  1. LAMICTAL [Suspect]
     Indication: DRUG USE FOR UNKNOWN INDICATION
     Dosage: 150MG PER DAY
     Route: 048
  2. ALTACE [Concomitant]
  3. DESIPRAMINE HCL [Concomitant]
  4. LIPITOR [Concomitant]
  5. PAXIL [Concomitant]
     Route: 048
  6. PRAVACHOL [Concomitant]
  7. ZOMIG [Concomitant]

REACTIONS (1)
  - RETINAL VEIN THROMBOSIS [None]
